FAERS Safety Report 8820616 (Version 1)
Quarter: 2012Q4

REPORT INFORMATION
  Report Type: 
  Country: US (occurrence: US)
  Receive Date: 20121002
  Receipt Date: 20121002
  Transmission Date: 20130627
  Serious: No
  Sender: FDA-Public Use
  Company Number: US-VERTEX PHARMACEUTICAL INC.-2012-020485

PATIENT
  Age: 17 Year
  Sex: Female
  Weight: 72 kg

DRUGS (5)
  1. VX-950 [Suspect]
     Indication: HEPATITIS C
     Dosage: 750 mg, tid
     Route: 048
  2. PEGASYS [Suspect]
     Indication: HEPATITIS C
     Dosage: 180 ?g, UNK
  3. RIBAPAK [Suspect]
     Indication: HEPATITIS C
  4. LEXAPRO [Concomitant]
     Dosage: 10 mg, UNK
  5. LOESTRIN [Concomitant]

REACTIONS (4)
  - Mouth ulceration [Unknown]
  - Burning sensation [Unknown]
  - Pain in extremity [Unknown]
  - Blister [Unknown]
